FAERS Safety Report 5603401-9 (Version None)
Quarter: 2008Q1

REPORT INFORMATION
  Report Type: 
  Country: None (occurrence: None)
  Receive Date: 20080122
  Receipt Date: 20080116
  Transmission Date: 20080703
  Serious: Yes (Disabling)
  Sender: FDA-Public Use
  Company Number: THQ2007A01160

PATIENT
  Age: 78 Year
  Sex: Male

DRUGS (3)
  1. PROSTAP 3 (LEUPROLIDE ACETATE) (INJECTION), 21401 [Suspect]
     Dosage: 11.25 MG (11.25 MG, 1 IN 3 M)
     Route: 058
     Dates: start: 20060404, end: 20070101
  2. ALENDRONIC ACID [Concomitant]
  3. CASODEX [Concomitant]

REACTIONS (5)
  - FATIGUE [None]
  - INJECTION SITE ABSCESS [None]
  - LETHARGY [None]
  - PURULENT DISCHARGE [None]
  - SEPSIS [None]
